FAERS Safety Report 4432269-1 (Version None)
Quarter: 2004Q3

REPORT INFORMATION
  Report Type: 
  Country: None (occurrence: None)
  Receive Date: 20040820
  Receipt Date: 20040810
  Transmission Date: 20050211
  Serious: Yes (Hospitalization)
  Sender: FDA-Public Use
  Company Number: STA-AE-04-MTX-356

PATIENT
  Age: 81 Year
  Sex: Female

DRUGS (5)
  1. RHEUMATREX [Suspect]
     Indication: RHEUMATOID ARTHRITIS
     Dosage: 4 MG 1X PER 1 WK; ORAL
     Route: 048
     Dates: start: 19990908, end: 20000420
  2. RHEUMATREX [Suspect]
     Indication: RHEUMATOID ARTHRITIS
     Dosage: 6 MG 1X PER 1 WK; ORAL
     Route: 048
     Dates: start: 20000421, end: 20000803
  3. RHEUMATREX [Suspect]
     Indication: RHEUMATOID ARTHRITIS
     Dosage: 8 MG, 1X PER 1 WK; ORAL
     Route: 048
     Dates: start: 20000803, end: 20040620
  4. METHOTREXATE [Suspect]
     Indication: RHEUMATOID ARTHRITIS
     Dosage: UNK, UNK; ORAL
     Route: 048
     Dates: start: 19981114, end: 19990301
  5. PREDNISOLONE [Concomitant]

REACTIONS (6)
  - BLOOD ALKALINE PHOSPHATASE INCREASED [None]
  - GAMMA-GLUTAMYLTRANSFERASE INCREASED [None]
  - JAUNDICE [None]
  - LYMPHADENOPATHY [None]
  - LYMPHOMA [None]
  - PLATELET COUNT DECREASED [None]
